FAERS Safety Report 7997031-1 (Version None)
Quarter: 2011Q4

REPORT INFORMATION
  Report Type: 
  Country: None (occurrence: None)
  Receive Date: 20111221
  Receipt Date: 20111216
  Transmission Date: 20120403
  Serious: Yes (Death)
  Sender: FDA-Public Use
  Company Number: PHEH2011US011910

PATIENT
  Age: 4 Year
  Sex: Male

DRUGS (1)
  1. FOCALIN [Suspect]
     Indication: ATTENTION DEFICIT/HYPERACTIVITY DISORDER
     Dates: start: 20110401, end: 20111203

REACTIONS (6)
  - DEATH [None]
  - WEIGHT DECREASED [None]
  - VOMITING [None]
  - INSOMNIA [None]
  - DECREASED APPETITE [None]
  - ABDOMINAL PAIN UPPER [None]
